FAERS Safety Report 4876877-2 (Version None)
Quarter: 2006Q1

REPORT INFORMATION
  Report Type: 
  Country: None (occurrence: None)
  Receive Date: 20060109
  Receipt Date: 20060109
  Transmission Date: 20060701
  Serious: Yes (Hospitalization)
  Sender: FDA-Public Use
  Company Number: None

PATIENT
  Age: 42 Year
  Sex: Male
  Weight: 63.5036 kg

DRUGS (3)
  1. BEVACIZUMAB [Suspect]
  2. DOCETAXEL [Suspect]
  3. OXALIPLATIN [Suspect]

REACTIONS (4)
  - CARCINOEMBRYONIC ANTIGEN INCREASED [None]
  - DISEASE PROGRESSION [None]
  - PAIN [None]
  - TUMOUR MARKER INCREASED [None]
